FAERS Safety Report 7835369-9 (Version None)
Quarter: 2011Q4

REPORT INFORMATION
  Report Type: 
  Country: None (occurrence: None)
  Receive Date: 20111024
  Receipt Date: 20111018
  Transmission Date: 20120403
  Serious: Yes (Death, Hospitalization)
  Sender: FDA-Public Use
  Company Number: DE-CELGENEUS-062-50794-11092110

PATIENT
  Age: 72 Year
  Sex: Female
  Weight: 79 kg

DRUGS (1)
  1. VIDAZA [Suspect]
     Dosage: 130MG
     Route: 058
     Dates: start: 20110502, end: 20110902

REACTIONS (2)
  - SEPTIC SHOCK [None]
  - PNEUMONIA [None]
